FAERS Safety Report 24846152 (Version 3)
Quarter: 2025Q2

REPORT INFORMATION
  Report Type: Spontaneous
  Country: SI (occurrence: SI)
  Receive Date: 20250115
  Receipt Date: 20250424
  Transmission Date: 20250716
  Serious: Yes (Hospitalization, Other)
  Sender: ORGANON
  Company Number: SI-BIOCON BIOLOGICS LIMITED-BBL2024009570

PATIENT
  Age: 34 Year
  Sex: Female
  Weight: 93 kg

DRUGS (5)
  1. ETHINYL ESTRADIOL\ETONOGESTREL [Suspect]
     Active Substance: ETHINYL ESTRADIOL\ETONOGESTREL
     Indication: Contraception
     Route: 067
  2. ADALIMUMAB [Suspect]
     Active Substance: ADALIMUMAB
     Indication: Hidradenitis
     Dosage: 40 MILLIGRAM, QW (WEEKLY)
     Route: 065
  3. CLINDAMYCIN [Concomitant]
     Active Substance: CLINDAMYCIN
     Indication: Hidradenitis
  4. DOXYCYCLINE [Concomitant]
     Active Substance: DOXYCYCLINE
     Indication: Hidradenitis
  5. OXYGEN [Concomitant]
     Active Substance: OXYGEN

REACTIONS (2)
  - Pancreatitis [Recovering/Resolving]
  - Hypertriglyceridaemia [Recovering/Resolving]
